FAERS Safety Report 9902774 (Version 1)
Quarter: 2014Q1

REPORT INFORMATION
  Report Type: Spontaneous
  Country: DE (occurrence: DE)
  Receive Date: 20140217
  Receipt Date: 20140217
  Transmission Date: 20141002
  Serious: Yes (Congenital Anomaly)
  Sender: FDA-Public Use
  Company Number: GXKR2014DE000895

PATIENT
  Age: 1 Day
  Sex: Male
  Weight: 3.87 kg

DRUGS (2)
  1. CARBAMAZEPINE [Suspect]
     Indication: TRIGEMINAL NEURALGIA
     Dosage: 400 MG DAILY SINCE APR2011
     Route: 064
     Dates: start: 20120115, end: 20121025
  2. ACIFOL//FOLIC ACID [Concomitant]
     Indication: PROPHYLAXIS OF NEURAL TUBE DEFECT
     Dosage: UNK UKN, UNK
     Route: 064
     Dates: start: 20120220

REACTIONS (2)
  - Buried penis syndrome [Recovered/Resolved with Sequelae]
  - Phimosis [Recovered/Resolved with Sequelae]
